FAERS Safety Report 22028561 (Version 1)
Quarter: 2023Q1

REPORT INFORMATION
  Report Type: Spontaneous
  Country: US (occurrence: None)
  Receive Date: 20230223
  Receipt Date: 20230223
  Transmission Date: 20230417
  Serious: No
  Sender: FDA-Public Use
  Company Number: US-ROCHE-3148434

PATIENT
  Age: 11 Year
  Sex: Male
  Weight: 31.326 kg

DRUGS (3)
  1. NUTROPIN AQ [Suspect]
     Active Substance: SOMATROPIN
     Indication: Hypopituitarism
     Dosage: NUSPIN 10 MG PEN, 1.1 MG DAILY
     Route: 058
     Dates: start: 20220217
  2. NUTROPIN AQ [Suspect]
     Active Substance: SOMATROPIN
     Indication: Short stature
  3. NUTROPIN AQ [Suspect]
     Active Substance: SOMATROPIN
     Indication: Growth hormone deficiency

REACTIONS (2)
  - Product quality issue [Unknown]
  - No adverse event [Unknown]

NARRATIVE: CASE EVENT DATE: 20220722
